FAERS Safety Report 8522158-5 (Version None)
Quarter: 2012Q3

REPORT INFORMATION
  Report Type: 
  Country: None (occurrence: None)
  Receive Date: 20120719
  Receipt Date: 20120716
  Transmission Date: 20120928
  Serious: Yes (Other)
  Sender: FDA-Public Use
  Company Number: VE-PFIZER INC-2012148336

PATIENT
  Sex: Female

DRUGS (1)
  1. CADUET [Suspect]
     Dosage: AMLODIPINE BESILATE 5 MG/ATORVASTATIN CALCIUM 40 MG, UNK

REACTIONS (1)
  - BONE DISORDER [None]
